FAERS Safety Report 21852838 (Version 3)
Quarter: 2024Q4

REPORT INFORMATION
  Report Type: Report from Study
  Country: GB (occurrence: GB)
  Receive Date: 20230112
  Receipt Date: 20241223
  Transmission Date: 20250114
  Serious: Yes (Death, Hospitalization, Other)
  Sender: ROCHE
  Company Number: GB-ROCHE-2181598

PATIENT
  Sex: Male

DRUGS (6)
  1. TOCILIZUMAB [Suspect]
     Active Substance: TOCILIZUMAB
     Indication: Rheumatoid arthritis
     Route: 058
     Dates: start: 20180116
  2. TOCILIZUMAB [Suspect]
     Active Substance: TOCILIZUMAB
     Route: 058
     Dates: start: 2022
  3. CARVEDILOL [Concomitant]
     Active Substance: CARVEDILOL
  4. TRAMADOL [Concomitant]
     Active Substance: TRAMADOL
  5. FERROUS SULFATE [Concomitant]
     Active Substance: FERROUS SULFATE
  6. LANSOPRAZOLE [Concomitant]
     Active Substance: LANSOPRAZOLE

REACTIONS (10)
  - Infection [Unknown]
  - Pain [Unknown]
  - Condition aggravated [Unknown]
  - Myocardial infarction [Unknown]
  - COVID-19 [Unknown]
  - Cellulitis [Unknown]
  - Fall [Unknown]
  - Pneumonia [Unknown]
  - Lower respiratory tract infection [Unknown]
  - Death [Fatal]
